FAERS Safety Report 8725047 (Version 2)
Quarter: 2012Q4

REPORT INFORMATION
  Report Type: Report from Study
  Country: DE (occurrence: DE)
  Receive Date: 20120815
  Receipt Date: 20120912
  Transmission Date: 20130627
  Serious: Yes (Hospitalization, Other)
  Sender: FDA-Public Use
  Company Number: DE-ROCHE-1100110

PATIENT
  Age: 67 Year
  Sex: Female
  Weight: 63 kg

DRUGS (5)
  1. AVASTIN [Suspect]
     Indication: NON-SMALL CELL LUNG CANCER
     Route: 042
     Dates: start: 20110714
  2. AVASTIN [Suspect]
     Dosage: Maintenance therapy
     Route: 042
     Dates: end: 20120619
  3. PEMETREXED DISODIUM [Suspect]
     Indication: NON-SMALL CELL LUNG CANCER
     Route: 042
  4. MCP [Concomitant]
     Dosage: 40 drops
     Route: 065
     Dates: start: 2012
  5. FOSINOPRIL [Concomitant]
     Route: 065

REACTIONS (1)
  - Glomerulonephritis [Not Recovered/Not Resolved]
